FAERS Safety Report 6556831-5 (Version None)
Quarter: 2010Q1

REPORT INFORMATION
  Report Type: 
  Country: None (occurrence: None)
  Receive Date: 20100128
  Receipt Date: 20100120
  Transmission Date: 20100710
  Serious: Yes (Other)
  Sender: FDA-Public Use
  Company Number: PHEH2010US01125

PATIENT
  Sex: Female

DRUGS (1)
  1. GENTEAL PM LUBRICANT EYE OINTMENT [Suspect]

REACTIONS (2)
  - BLINDNESS [None]
  - VISION BLURRED [None]
